FAERS Safety Report 19266162 (Version 4)
Quarter: 2021Q2

REPORT INFORMATION
  Report Type: Report from Study
  Country: JP (occurrence: JP)
  Receive Date: 20210518
  Receipt Date: 20210603
  Transmission Date: 20210717
  Serious: Yes (Hospitalization, Other)
  Sender: FDA-Public Use
  Company Number: JP-CELLTRION INC.-2021JP006595

PATIENT

DRUGS (5)
  1. TRASTUZUMAB BS FOR I.V. INFUSION [NK] [Suspect]
     Active Substance: TRASTUZUMAB
     Indication: GASTRIC CANCER RECURRENT
     Dosage: 585 MG/KG, QD (EVERY ADMINISTRATION DATE)
     Route: 041
     Dates: start: 20201014, end: 20210504
  2. CAPECITABINE. [Suspect]
     Active Substance: CAPECITABINE
     Indication: GASTRIC CANCER
     Dosage: 2100 MG, BID
     Route: 048
     Dates: start: 20201014, end: 20210504
  3. PYDOXAL [Concomitant]
     Active Substance: PYRIDOXAL
     Indication: DERMATITIS
     Dosage: UNK
     Dates: start: 20210512
  4. OXALIPLATIN I.V. INFUSION SOLUTION 100MG[NK] [Suspect]
     Active Substance: OXALIPLATIN
     Indication: GASTRIC CANCER
     Dosage: 274 MG/M2, QD (EVERY ADMINISTRATION DATE)
     Route: 041
     Dates: start: 20201014
  5. OXALIPLATIN I.V. INFUSION SOLUTION 100MG[NK] [Suspect]
     Active Substance: OXALIPLATIN
     Dosage: 210 MG/M2, QD (EVERY ADMINISTRATION DATE)
     Route: 041
     Dates: start: 20210217, end: 20210504

REACTIONS (6)
  - Overdose [Unknown]
  - Tumour haemorrhage [Not Recovered/Not Resolved]
  - Dizziness [Recovered/Resolved]
  - Anaemia [Recovered/Resolved]
  - Heavy menstrual bleeding [Recovered/Resolved]
  - Disease progression [Recovered/Resolved]

NARRATIVE: CASE EVENT DATE: 20210510
